FAERS Safety Report 6313290-5 (Version None)
Quarter: 2009Q3

REPORT INFORMATION
  Report Type: 
  Country: None (occurrence: None)
  Receive Date: 20090818
  Receipt Date: 20090811
  Transmission Date: 20100115
  Serious: Yes (Other)
  Sender: FDA-Public Use
  Company Number: A0798518A

PATIENT
  Age: 79 Year
  Sex: Female
  Weight: 67.3 kg

DRUGS (14)
  1. MELPHALAN HYDROCHLORIDE [Suspect]
     Indication: MULTIPLE MYELOMA
     Dosage: 9MGM2 CYCLIC
     Route: 048
     Dates: start: 20090330
  2. BORTEZOMIB [Suspect]
     Indication: MULTIPLE MYELOMA
     Dosage: 1MGM2 CYCLIC
     Route: 042
     Dates: start: 20090330
  3. PREDNISONE [Suspect]
     Indication: MULTIPLE MYELOMA
     Route: 048
     Dates: start: 20090330
  4. LEVAQUIN [Concomitant]
     Dates: start: 20090523
  5. PREMPRO [Concomitant]
  6. EXTRA STRENGTH TYLENOL [Concomitant]
  7. SIMVASTATIN [Concomitant]
  8. LOVAZA [Concomitant]
  9. CITRACAL + D [Concomitant]
  10. ENALAPRIL MALEATE [Concomitant]
     Indication: HYPERTENSION
  11. METOPROLOL TARTRATE [Concomitant]
     Indication: HYPERTENSION
  12. LEVOTHYROXINE [Concomitant]
     Indication: HYPOTHYROIDISM
  13. COLACE [Concomitant]
  14. MULTIVITAMIN [Concomitant]

REACTIONS (5)
  - ASTHENIA [None]
  - DIZZINESS [None]
  - ORTHOSTATIC HYPOTENSION [None]
  - SYNCOPE [None]
  - THROMBOCYTOPENIA [None]
